FAERS Safety Report 8290042-0 (Version None)
Quarter: 2012Q1

REPORT INFORMATION
  Report Type: 
  Country: None (occurrence: None)
  Receive Date: 20120316
  Receipt Date: 20090902
  Transmission Date: 20120608
  Serious: Yes (Other)
  Sender: FDA-Public Use
  Company Number: PHEH2009US09154

PATIENT
  Age: 75 Year
  Sex: Female
  Weight: 67.1 kg

DRUGS (5)
  1. BENADRYL ^ACHE^ (AMMONIUM CHLORIDE, DIPHENHYDRAMINE HYDROCHLORIDE, MEN [Concomitant]
  2. ZANTAC [Concomitant]
  3. ELAVIL [Concomitant]
  4. TEKTURNA [Suspect]
     Indication: HYPERTENSION
     Dosage: 150 MG, QD, ORAL
     Route: 048
     Dates: start: 20090804, end: 20090811
  5. PRILOSEC [Concomitant]

REACTIONS (6)
  - HEADACHE [None]
  - POLLAKIURIA [None]
  - SWOLLEN TONGUE [None]
  - NAUSEA [None]
  - DRY MOUTH [None]
  - COUGH [None]
